FAERS Safety Report 10260129 (Version 1)
Quarter: 2014Q2

REPORT INFORMATION
  Report Type: Spontaneous
  Country: NZ (occurrence: NZ)
  Receive Date: 20140625
  Receipt Date: 20140625
  Transmission Date: 20141212
  Serious: Yes (Other)
  Sender: FDA-Public Use
  Company Number: NZ-WATSON-2014-14104

PATIENT
  Sex: Female

DRUGS (1)
  1. PREDNISONE (UNKNOWN) [Suspect]
     Indication: GRANULOMATOSIS WITH POLYANGIITIS
     Dosage: 20 MG, UNK
     Route: 065

REACTIONS (1)
  - Psychotic behaviour [Unknown]
